FAERS Safety Report 7506890-8 (Version None)
Quarter: 2011Q2

REPORT INFORMATION
  Report Type: 
  Country: None (occurrence: None)
  Receive Date: 20110526
  Receipt Date: 20110519
  Transmission Date: 20111010
  Serious: Yes (Other)
  Sender: FDA-Public Use
  Company Number: AR-GENZYME-CERZ-1001578

PATIENT

DRUGS (4)
  1. CEREZYME [Suspect]
     Indication: GAUCHER'S DISEASE
     Dosage: 58 U/KG, Q2W
     Route: 042
  2. CALCIUM CARBONATE [Concomitant]
     Indication: OSTEOPOROSIS
     Dosage: 500 MG, QD
  3. PAMIDRONATE DISODIUM [Concomitant]
     Indication: OSTEOPOROSIS
     Dosage: 60 MG, UNK
     Route: 042
  4. VITAMIN D2 [Concomitant]
     Indication: OSTEOPOROSIS
     Dosage: 800 IU, QD

REACTIONS (1)
  - PRE-ECLAMPSIA [None]
